FAERS Safety Report 25047637 (Version 2)
Quarter: 2025Q4

REPORT INFORMATION
  Report Type: Spontaneous
  Country: US (occurrence: US)
  Receive Date: 20250306
  Receipt Date: 20251008
  Transmission Date: 20260117
  Serious: Yes (Other)
  Sender: BRISTOL-MYERS SQUIBB COMPANY
  Company Number: US-BRISTOL-MYERS SQUIBB COMPANY-2025-033949

PATIENT
  Age: 76 Year
  Sex: Female

DRUGS (2)
  1. SPRYCEL [Suspect]
     Active Substance: DASATINIB
     Indication: Chronic myeloid leukaemia
     Dates: start: 202201
  2. SPRYCEL [Suspect]
     Active Substance: DASATINIB
     Indication: Nephrogenic anaemia

REACTIONS (6)
  - Swelling face [Unknown]
  - Vision blurred [Unknown]
  - Hypoaesthesia [Unknown]
  - Constipation [Unknown]
  - Weight increased [Unknown]
  - Neuropathy peripheral [Unknown]
